FAERS Safety Report 4611951-7 (Version None)
Quarter: 2005Q2

REPORT INFORMATION
  Report Type: 
  Country: None (occurrence: None)
  Receive Date: 20050308
  Receipt Date: 20041217
  Transmission Date: 20051028
  Serious: Yes (Other)
  Sender: FDA-Public Use
  Company Number: 2004UW25764

PATIENT
  Age: 61 Year
  Sex: Male
  Weight: 91.625 kg

DRUGS (6)
  1. CRESTOR [Suspect]
     Indication: HYPERCHOLESTEROLAEMIA
     Dosage: 20 MG PO
     Route: 048
     Dates: start: 20040701
  2. PROSCAR [Concomitant]
  3. ENALAPRIL MALEATE [Concomitant]
  4. NO MATCH [Concomitant]
  5. NO MATCH [Concomitant]
  6. AVAPRO [Concomitant]

REACTIONS (1)
  - MICROALBUMINURIA [None]
